FAERS Safety Report 6506267-8 (Version None)
Quarter: 2009Q4

REPORT INFORMATION
  Report Type: 
  Country: None (occurrence: None)
  Receive Date: 20091216
  Receipt Date: 20091201
  Transmission Date: 20100525
  Serious: Yes (Hospitalization, Other)
  Sender: FDA-Public Use
  Company Number: A-CH2009-31142

PATIENT
  Age: 57 Year
  Sex: Female
  Weight: 65 kg

DRUGS (3)
  1. TRACLEER [Suspect]
     Indication: PULMONARY HYPERTENSION
     Dosage: 62.5 MG, BID, ORAL
     Route: 048
     Dates: start: 20091120, end: 20091122
  2. LASIX [Concomitant]
  3. SINTROM [Concomitant]

REACTIONS (1)
  - LIVER FUNCTION TEST ABNORMAL [None]
